FAERS Safety Report 24770600 (Version 1)
Quarter: 2024Q4

REPORT INFORMATION
  Report Type: Spontaneous
  Country: US (occurrence: None)
  Receive Date: 20241222
  Receipt Date: 20241222
  Transmission Date: 20250114
  Serious: No
  Sender: Public
  Company Number: None

PATIENT
  Age: 43 Year
  Sex: Male
  Weight: 87.75 kg

DRUGS (2)
  1. CABOMETYX [Suspect]
     Active Substance: CABOZANTINIB S-MALATE
     Indication: Renal cancer
     Dosage: 1 TBLET ORL ?
     Route: 048
  2. COSMETICS [Suspect]
     Active Substance: COSMETICS

REACTIONS (3)
  - Scrotal ulcer [None]
  - Skin burning sensation [None]
  - Skin laceration [None]

NARRATIVE: CASE EVENT DATE: 20241215
